FAERS Safety Report 7305265-4 (Version None)
Quarter: 2011Q1

REPORT INFORMATION
  Report Type: 
  Country: None (occurrence: None)
  Receive Date: 20110222
  Receipt Date: 20110207
  Transmission Date: 20110831
  Serious: Yes (Other)
  Sender: FDA-Public Use
  Company Number: US-SANOFI-AVENTIS-2011SA008140

PATIENT
  Age: 73 Year
  Sex: Female

DRUGS (5)
  1. MULTAQ [Suspect]
     Indication: ATRIAL FIBRILLATION
     Route: 048
     Dates: start: 20100101
  2. WARFARIN [Concomitant]
  3. COREG [Concomitant]
     Dates: start: 20030101
  4. HYDROCHLOROTHIAZIDE [Concomitant]
  5. PRAVASTATIN [Concomitant]

REACTIONS (4)
  - OEDEMA PERIPHERAL [None]
  - HYPOTENSION [None]
  - ATRIAL FIBRILLATION [None]
  - ASTHENIA [None]
